FAERS Safety Report 9904743 (Version 1)
Quarter: 2014Q1

REPORT INFORMATION
  Report Type: Other
  Country: US (occurrence: US)
  Receive Date: 20140218
  Receipt Date: 20140218
  Transmission Date: 20141002
  Serious: No
  Sender: FDA-Public Use
  Company Number: US-ENDO PHARMACEUTICALS INC.-METO20130018

PATIENT
  Sex: Female

DRUGS (1)
  1. METOCLOPRAMIDE HYDROCHLORIDE [Suspect]
     Indication: REFLUX GASTRITIS
     Dosage: UNKNOWN
     Route: 048
     Dates: start: 2005, end: 2009

REACTIONS (3)
  - Tardive dyskinesia [Unknown]
  - Extrapyramidal disorder [Unknown]
  - Incorrect drug administration duration [Recovered/Resolved]
